FAERS Safety Report 4757837-9 (Version None)
Quarter: 2005Q3

REPORT INFORMATION
  Report Type: 
  Country: None (occurrence: None)
  Receive Date: 20050830
  Receipt Date: 20050819
  Transmission Date: 20060218
  Serious: Yes (Hospitalization)
  Sender: FDA-Public Use
  Company Number: 2005-131883-NL

PATIENT
  Age: 12 Month
  Sex: Female

DRUGS (4)
  1. VECURONIUM BROMIDE [Suspect]
     Indication: SEDATION
     Dosage: DF INTRAVENOUS DRIP
     Route: 041
     Dates: start: 20050201
  2. MIDAZOLAM HYDROCHLORIDE [Suspect]
     Indication: SEDATION
     Dosage: DF INTRAVENOUS DRIP
     Route: 041
     Dates: start: 20050201
  3. DOPAMINE HCL [Concomitant]
  4. ISOPRENALINE HYDROCHLORIDE [Concomitant]

REACTIONS (4)
  - BODY TEMPERATURE INCREASED [None]
  - DISSEMINATED INTRAVASCULAR COAGULATION [None]
  - HEPATIC FUNCTION ABNORMAL [None]
  - INFECTION [None]
